FAERS Safety Report 6745684-8 (Version None)
Quarter: 2010Q2

REPORT INFORMATION
  Report Type: 
  Country: None (occurrence: None)
  Receive Date: 20100526
  Receipt Date: 20100514
  Transmission Date: 20101027
  Serious: Yes (Other)
  Sender: FDA-Public Use
  Company Number: 7003401

PATIENT
  Age: 43 Year
  Sex: Female
  Weight: 69 kg

DRUGS (2)
  1. REBIF [Suspect]
     Indication: MULTIPLE SCLEROSIS
     Dosage: 44 MCG, 3 IN 1 WK, SUBCUTANEOUS
     Route: 058
     Dates: start: 20061019
  2. ARMOUR THYROID (THYROID) [Concomitant]

REACTIONS (5)
  - CHOLELITHIASIS [None]
  - CONDITION AGGRAVATED [None]
  - INJECTION SITE REACTION [None]
  - MIGRAINE [None]
  - SCAR [None]
